FAERS Safety Report 6818797-X (Version None)
Quarter: 2010Q2

REPORT INFORMATION
  Report Type: 
  Country: None (occurrence: None)
  Receive Date: 20100630
  Receipt Date: 20100619
  Transmission Date: 20101027
  Serious: Yes (Other)
  Sender: FDA-Public Use
  Company Number: 2010AP001285

PATIENT
  Age: 35 Year
  Sex: Female

DRUGS (4)
  1. FLUOXETINE HYDROCHLORIDE [Suspect]
     Dosage: 60 MG; QD, 80 MG; QD
  2. ZUCLOPENTHIXOL (ZUCLOPENTHIXOL) 100 MG; IM; 1X [Suspect]
     Dosage: 100 MG; 1X, IM
     Route: 030
  3. QUETIAPINE [Concomitant]
  4. NITRAZEPAM [Concomitant]

REACTIONS (7)
  - BLOOD PRESSURE SYSTOLIC INCREASED [None]
  - DRUG INTERACTION [None]
  - DRUG TOXICITY [None]
  - DYSTONIA [None]
  - MULTIPLE DRUG OVERDOSE [None]
  - SPASMODIC DYSPHONIA [None]
  - STRIDOR [None]
